FAERS Safety Report 17365002 (Version 7)
Quarter: 2025Q3

REPORT INFORMATION
  Report Type: Spontaneous
  Country: EU (occurrence: EU)
  Receive Date: 20200204
  Receipt Date: 20250828
  Transmission Date: 20251020
  Serious: Yes (Hospitalization, Other)
  Sender: AUROBINDO
  Company Number: EU-USP-ICSR-2020-87_01

PATIENT
  Age: 60 Year
  Sex: Female

DRUGS (7)
  1. METOPROLOL [Suspect]
     Active Substance: METOPROLOL
     Indication: Product used for unknown indication
     Route: 065
  2. RAMIPRIL [Suspect]
     Active Substance: RAMIPRIL
     Indication: Product used for unknown indication
     Route: 065
  3. ASPIRIN [Suspect]
     Active Substance: ASPIRIN
     Indication: Product used for unknown indication
     Route: 065
  4. BENCYCLANE [Suspect]
     Active Substance: BENCYCLANE
     Indication: Product used for unknown indication
     Route: 065
  5. GLICLAZIDE [Suspect]
     Active Substance: GLICLAZIDE
     Indication: Product used for unknown indication
     Route: 065
  6. LEVOTHYROXINE SODIUM [Suspect]
     Active Substance: LEVOTHYROXINE SODIUM
     Indication: Product used for unknown indication
     Route: 065
  7. TORSEMIDE [Suspect]
     Active Substance: TORSEMIDE
     Indication: Product used for unknown indication
     Route: 065

REACTIONS (8)
  - Interstitial lung disease [Recovering/Resolving]
  - Dermatomyositis [Recovering/Resolving]
  - Exercise tolerance decreased [Unknown]
  - Body temperature increased [Unknown]
  - Arthralgia [Unknown]
  - Antisynthetase syndrome [Unknown]
  - Dyspnoea at rest [Unknown]
  - Pulmonary malformation [Unknown]
